FAERS Safety Report 4954439-6 (Version None)
Quarter: 2006Q1

REPORT INFORMATION
  Report Type: 
  Country: None (occurrence: None)
  Receive Date: 20060322
  Receipt Date: 20060313
  Transmission Date: 20060701
  Serious: Yes (Hospitalization)
  Sender: FDA-Public Use
  Company Number: ZONI002291

PATIENT
  Age: 5 Year
  Sex: Male

DRUGS (2)
  1. ZONISAMIDE [Suspect]
     Indication: EPILEPSY
     Dosage: 80 MG, ORAL
     Route: 048
     Dates: start: 20051110, end: 20060313
  2. VALPROATE SODIUM [Concomitant]

REACTIONS (4)
  - AGGRESSION [None]
  - DEPRESSED LEVEL OF CONSCIOUSNESS [None]
  - DYSLALIA [None]
  - EXCITABILITY [None]
